FAERS Safety Report 5697391-0 (Version None)
Quarter: 2008Q2

REPORT INFORMATION
  Report Type: 
  Country: None (occurrence: None)
  Receive Date: 20080407
  Receipt Date: 20080402
  Transmission Date: 20081010
  Serious: Yes (Other)
  Sender: FDA-Public Use
  Company Number: PHEH2008US03365

PATIENT
  Sex: Male

DRUGS (1)
  1. ZADITOR [Suspect]

REACTIONS (2)
  - EYE DISORDER [None]
  - OPHTHALMOPLEGIA [None]
